FAERS Safety Report 14293301 (Version 1)
Quarter: 2017Q4

REPORT INFORMATION
  Report Type: Spontaneous
  Country: US (occurrence: US)
  Receive Date: 20171215
  Receipt Date: 20171215
  Transmission Date: 20180321
  Serious: No
  Sender: FDA-Public Use
  Company Number: PHEH2017US040679

PATIENT
  Sex: Female

DRUGS (1)
  1. AFINITOR [Suspect]
     Active Substance: EVEROLIMUS
     Indication: METASTASIS
     Dosage: UNK UNK, QD
     Route: 048
     Dates: start: 20171110

REACTIONS (2)
  - Dry skin [Not Recovered/Not Resolved]
  - Rash maculo-papular [Not Recovered/Not Resolved]
